FAERS Safety Report 18917037 (Version 3)
Quarter: 2021Q1

REPORT INFORMATION
  Report Type: Spontaneous
  Country: US (occurrence: US)
  Receive Date: 20210219
  Receipt Date: 20210319
  Transmission Date: 20210420
  Serious: Yes (Other)
  Sender: FDA-Public Use
  Company Number: US-EMD SERONO-9219810

PATIENT
  Age: 25 Year
  Sex: Male

DRUGS (7)
  1. GONAL?F RFF [Suspect]
     Active Substance: FOLLITROPIN
     Indication: INFERTILITY MALE
     Route: 058
     Dates: start: 2018
  2. DDAVP [Concomitant]
     Active Substance: DESMOPRESSIN ACETATE
     Indication: PRODUCT USED FOR UNKNOWN INDICATION
  3. GONAL?F RFF [Suspect]
     Active Substance: FOLLITROPIN
     Indication: HYPOPITUITARISM
     Dosage: 150 UNITS 3 TIMES PER WEEK?SOMETIMES PATIENT USED THE 300 IU PENS, AND SOMETIMES THE 450 IU PEN
     Dates: start: 2019, end: 2020
  4. PREGNYL [Concomitant]
     Active Substance: CHORIOGONADOTROPIN ALFA
     Indication: PRODUCT USED FOR UNKNOWN INDICATION
     Dates: start: 2017
  5. HYDROCORTISONE. [Concomitant]
     Active Substance: HYDROCORTISONE
     Indication: PRODUCT USED FOR UNKNOWN INDICATION
  6. LEVOTHYROXINE. [Concomitant]
     Active Substance: LEVOTHYROXINE
     Indication: PRODUCT USED FOR UNKNOWN INDICATION
  7. ZOMACTON [Concomitant]
     Active Substance: SOMATROPIN
     Indication: PRODUCT USED FOR UNKNOWN INDICATION

REACTIONS (2)
  - Pituitary tumour recurrent [Unknown]
  - Off label use [Unknown]

NARRATIVE: CASE EVENT DATE: 2019
